FAERS Safety Report 15585888 (Version 1)
Quarter: 2018Q4

REPORT INFORMATION
  Report Type: Spontaneous
  Country: US (occurrence: US)
  Receive Date: 20181105
  Receipt Date: 20181105
  Transmission Date: 20190205
  Serious: No
  Sender: FDA-Public Use
  Company Number: US-PFIZER INC-2017020644

PATIENT
  Age: 8 Year
  Sex: Male
  Weight: 18.59 kg

DRUGS (3)
  1. GENOTROPIN [Suspect]
     Active Substance: SOMATROPIN
     Indication: GROWTH RETARDATION
     Dosage: 1.4 UG, 1X/DAY (ON THIGH)
  2. GENOTROPIN [Suspect]
     Active Substance: SOMATROPIN
     Dosage: 1.6 MG, DAILY
  3. GENOTROPIN [Suspect]
     Active Substance: SOMATROPIN
     Dosage: 2.8 UG, 1X/DAY (ONCE NIGHT)
     Route: 030

REACTIONS (2)
  - Incorrect dose administered [Unknown]
  - Lymphocyte count increased [Unknown]
